FAERS Safety Report 6473185-3 (Version None)
Quarter: 2009Q4

REPORT INFORMATION
  Report Type: 
  Country: None (occurrence: None)
  Receive Date: 20091204
  Receipt Date: 20090710
  Transmission Date: 20100525
  Serious: Yes (Other)
  Sender: FDA-Public Use
  Company Number: US-ELI_LILLY_AND_COMPANY-US200806006297

PATIENT
  Sex: Female
  Weight: 118.37 kg

DRUGS (25)
  1. BYETTA [Suspect]
     Indication: TYPE 2 DIABETES MELLITUS
     Dosage: 5 UG, 2/D
     Dates: start: 20061001
  2. BYETTA [Suspect]
     Dosage: 10 UG, 2/D
     Route: 058
     Dates: start: 20080401, end: 20080401
  3. BYETTA [Suspect]
     Dosage: 5 UG, 2/D
     Route: 058
     Dates: start: 20080401, end: 20080501
  4. BYETTA [Suspect]
     Dosage: 10 UG, 2/D
     Route: 058
     Dates: start: 20080501
  5. LANTUS [Concomitant]
     Indication: TYPE 2 DIABETES MELLITUS
     Dosage: 36 U, EACH MORNING
     Route: 058
  6. PRANDIN [Concomitant]
     Indication: TYPE 2 DIABETES MELLITUS
     Dosage: 2 MG, 3/D
     Route: 048
  7. HUMALOG [Concomitant]
     Indication: TYPE 2 DIABETES MELLITUS
     Dosage: UNK, AS NEEDED
     Route: 058
  8. ARIMIDEX [Concomitant]
     Indication: BREAST CANCER
     Dosage: 1 MG, DAILY (1/D)
     Route: 048
  9. SYNTHROID [Concomitant]
     Indication: THYROID HORMONE REPLACEMENT THERAPY
     Dosage: 175 UG, UNK
     Dates: start: 19780101
  10. SYNTHROID [Concomitant]
     Dosage: 200 UG, UNK
  11. METOPROLOL [Concomitant]
     Indication: MIGRAINE
     Dosage: 75 MG, 2/D
     Route: 048
  12. FAMOTIDINE [Concomitant]
     Dosage: 40 MG, EACH EVENING
     Route: 048
  13. NORTRIPTYLINE [Concomitant]
     Indication: NEUROPATHY PERIPHERAL
     Dosage: 155 MG, DAILY (1/D)
     Route: 048
  14. NORTRIPTYLINE [Concomitant]
     Dosage: 175 MG, DAILY (1/D)
     Route: 048
  15. FLOVENT [Concomitant]
     Dosage: UNK, AS NEEDED
     Route: 055
  16. FLONASE [Concomitant]
     Dosage: UNK, AS NEEDED
     Route: 055
  17. ALBUTEROL [Concomitant]
     Dosage: UNK, AS NEEDED
     Route: 055
  18. SINGULAIR [Concomitant]
     Dosage: 10 MG, EACH EVENING
     Dates: start: 20070101
  19. GABAPENTIN [Concomitant]
     Indication: NEUROPATHY PERIPHERAL
     Dosage: 100 MG, EACH EVENING
     Route: 048
     Dates: start: 20040501
  20. SIMVASTATIN [Concomitant]
     Indication: BLOOD CHOLESTEROL
     Dosage: 40 MG, UNK
  21. TYLENOL W/ CODEINE NO. 3 [Concomitant]
     Indication: ARTHRALGIA
     Dosage: UNK, AS NEEDED
     Route: 048
  22. TRIAMTERENE AND HYDROCHLOROTHIAZIDE [Concomitant]
     Indication: SWELLING
     Dosage: UNK, AS NEEDED
     Route: 048
  23. DOXYCYCLINE [Concomitant]
     Indication: PROPHYLAXIS
     Dosage: 100 MG, UNK
     Route: 048
     Dates: start: 20070901
  24. ASPIRIN [Concomitant]
     Dosage: 325 MG, DAILY (1/D)
     Route: 048
  25. ASPIRIN [Concomitant]
     Dosage: 325 MG, QOD
     Dates: start: 20080602

REACTIONS (33)
  - ANXIETY [None]
  - ARTHRALGIA [None]
  - ARTHROPATHY [None]
  - BLOOD GLUCOSE DECREASED [None]
  - BLOOD GLUCOSE INCREASED [None]
  - BURNING SENSATION [None]
  - CELLULITIS [None]
  - DIARRHOEA [None]
  - DIPLOPIA [None]
  - ERYTHEMA [None]
  - FOOT FRACTURE [None]
  - HEART RATE INCREASED [None]
  - HYPERHIDROSIS [None]
  - HYPOAESTHESIA [None]
  - INCORRECT DOSE ADMINISTERED [None]
  - INSOMNIA [None]
  - LACERATION [None]
  - LYMPHOEDEMA [None]
  - MIGRAINE [None]
  - MOBILITY DECREASED [None]
  - NAUSEA [None]
  - NEUROPATHY PERIPHERAL [None]
  - OSTEOPENIA [None]
  - PARAESTHESIA [None]
  - POLYARTHRITIS [None]
  - PUNCTURE SITE HAEMORRHAGE [None]
  - PYREXIA [None]
  - SKIN INFECTION [None]
  - THYROID CANCER [None]
  - THYROID PAIN [None]
  - VITAMIN D DEFICIENCY [None]
  - VOMITING [None]
  - WEIGHT DECREASED [None]
